FAERS Safety Report 10930062 (Version 1)
Quarter: 2015Q1

REPORT INFORMATION
  Report Type: Spontaneous
  Country: US (occurrence: US)
  Receive Date: 20150319
  Receipt Date: 20150319
  Transmission Date: 20150721
  Serious: No
  Sender: FDA-Public Use
  Company Number: US-TEVA-532745USA

PATIENT
  Sex: Female

DRUGS (2)
  1. NORTRIPTYLINE [Suspect]
     Active Substance: NORTRIPTYLINE
     Indication: PRODUCT USED FOR UNKNOWN INDICATION
     Dosage: FREQUENCY NOT PROVIDED
  2. DULOXETINE [Concomitant]
     Active Substance: DULOXETINE
     Dosage: FREQUENCY NOT PROVIDED

REACTIONS (6)
  - Skin swelling [Unknown]
  - Gastrointestinal injury [Unknown]
  - Hepatic steatosis [Unknown]
  - Arthralgia [Unknown]
  - Abdominal distension [Unknown]
  - Arthritis [Unknown]
